FAERS Safety Report 4372679-4 (Version None)
Quarter: 2004Q2

REPORT INFORMATION
  Report Type: 
  Country: None (occurrence: None)
  Receive Date: 20040608
  Receipt Date: 20040527
  Transmission Date: 20050107
  Serious: Yes (Hospitalization)
  Sender: FDA-Public Use
  Company Number: US-JNJFOC-20040600203

PATIENT
  Sex: Female
  Weight: 68.04 kg

DRUGS (8)
  1. REMICADE [Suspect]
     Route: 042
  2. REMICADE [Suspect]
     Indication: CROHN'S DISEASE
     Route: 042
  3. ENTACORT [Concomitant]
  4. ENTACORT [Concomitant]
     Indication: CROHN'S DISEASE
  5. LOMOTIL [Concomitant]
  6. LOMOTIL [Concomitant]
  7. TYLENOL [Concomitant]
     Indication: PAIN
  8. MERCAPTOPURINE [Concomitant]
     Indication: CROHN'S DISEASE

REACTIONS (2)
  - ASTHENIA [None]
  - PAIN IN JAW [None]
